FAERS Safety Report 15461390 (Version 3)
Quarter: 2018Q4

REPORT INFORMATION
  Report Type: Spontaneous
  Country: JP (occurrence: JP)
  Receive Date: 20181003
  Receipt Date: 20181108
  Transmission Date: 20190204
  Serious: Yes (Hospitalization)
  Sender: FDA-Public Use
  Company Number: JP-TAKEDA-2018TEU005750

PATIENT
  Age: 67 Year
  Sex: Male
  Weight: 47.8 kg

DRUGS (3)
  1. TACHOSIL [Suspect]
     Active Substance: FIBRINOGEN HUMAN\THROMBIN HUMAN
     Indication: HAEMOSTASIS
     Dosage: UNK
     Route: 065
     Dates: start: 20180910
  2. STAYBLA [Concomitant]
     Active Substance: IMIDAFENACIN
     Dosage: UNK
     Route: 065
     Dates: start: 20180910
  3. BERIPLAST P COMBI [Suspect]
     Active Substance: APROTININ\CALCIUM CHLORIDE\FIBRINOGEN HUMAN\FACTOR XIII CONCENTRATE (HUMAN)\THROMBIN
     Indication: HAEMOSTASIS
     Dosage: UNK
     Route: 065
     Dates: start: 20180910

REACTIONS (2)
  - Pneumonia [Recovering/Resolving]
  - Drug ineffective [Unknown]

NARRATIVE: CASE EVENT DATE: 20180913
